FAERS Safety Report 23602389 (Version 1)
Quarter: 2024Q1

REPORT INFORMATION
  Report Type: Spontaneous
  Country: US (occurrence: US)
  Receive Date: 20240306
  Receipt Date: 20240306
  Transmission Date: 20240409
  Serious: No
  Sender: FDA-Public Use
  Company Number: US-PFIZER INC-PV202400030369

PATIENT

DRUGS (5)
  1. SULFASALAZINE [Suspect]
     Active Substance: SULFASALAZINE
     Dosage: 1000 MG, 1X/DAY
     Dates: start: 2023
  2. SULFASALAZINE [Suspect]
     Active Substance: SULFASALAZINE
     Dosage: 1000 MG, 2X/DAY
  3. SULFASALAZINE [Suspect]
     Active Substance: SULFASALAZINE
     Dosage: 1500 MG, 2X/DAY
  4. COSENTYX [Concomitant]
     Active Substance: SECUKINUMAB
     Dosage: I^VE ONLY HAD INITIAL 4 STARTER SHOTS SO FAR
     Dates: start: 2024
  5. CHOLECALCIFEROL [Concomitant]
     Active Substance: CHOLECALCIFEROL
     Dosage: 6000 IU

REACTIONS (4)
  - Fatigue [Unknown]
  - Weight decreased [Unknown]
  - Arthralgia [Not Recovered/Not Resolved]
  - Gait disturbance [Recovered/Resolved]

NARRATIVE: CASE EVENT DATE: 20230101
